FAERS Safety Report 24219435 (Version 2)
Quarter: 2024Q3

REPORT INFORMATION
  Report Type: Spontaneous
  Country: US (occurrence: US)
  Receive Date: 20240816
  Receipt Date: 20240829
  Transmission Date: 20241017
  Serious: No
  Sender: AMGEN
  Company Number: US-AMGEN-USASP2024159513

PATIENT
  Age: 51 Year
  Sex: Female
  Weight: 77.551 kg

DRUGS (2)
  1. NEULASTA [Suspect]
     Active Substance: PEGFILGRASTIM
     Indication: Small cell lung cancer
     Dosage: 6 MILLIGRAM
     Route: 065
     Dates: start: 20240719
  2. NEULASTA [Suspect]
     Active Substance: PEGFILGRASTIM
     Dosage: 6 MILLIGRAM
     Route: 065

REACTIONS (1)
  - Intercepted product administration error [Recovered/Resolved]

NARRATIVE: CASE EVENT DATE: 20240809
